FAERS Safety Report 9812623 (Version 1)
Quarter: 2014Q1

REPORT INFORMATION
  Report Type: Spontaneous
  Country: US (occurrence: US)
  Receive Date: 20140113
  Receipt Date: 20140113
  Transmission Date: 20141002
  Serious: Yes (Death)
  Sender: FDA-Public Use
  Company Number: US-ASTRAZENECA-2014SE02359

PATIENT
  Age: 57 Year
  Sex: Female

DRUGS (7)
  1. QUETIAPINE [Suspect]
     Route: 048
  2. SERTRALINE [Suspect]
     Route: 065
  3. HEROIN [Suspect]
     Route: 065
  4. ALPRAZOLAM [Suspect]
     Route: 065
  5. COCAINE [Suspect]
     Route: 065
  6. DIPHENHYDRAMINE [Suspect]
     Route: 065
  7. CYCLOBENZAPRINE [Suspect]
     Route: 065

REACTIONS (2)
  - Toxicity to various agents [Fatal]
  - Drug abuse [Fatal]
